FAERS Safety Report 9226070 (Version 1)
Quarter: 2013Q2

REPORT INFORMATION
  Report Type: Spontaneous
  Country: US (occurrence: US)
  Receive Date: 20130411
  Receipt Date: 20130411
  Transmission Date: 20140414
  Serious: No
  Sender: FDA-Public Use
  Company Number: US-ASTRAZENECA-2013SE21178

PATIENT
  Sex: 0

DRUGS (7)
  1. PRILOSEC [Suspect]
     Route: 048
  2. SEROQUEL [Suspect]
     Route: 048
  3. ASPIRIN [Suspect]
     Route: 065
  4. PHENERGAN [Concomitant]
  5. REMERON [Concomitant]
  6. WELLBUTRIN [Concomitant]
  7. VISTARIL [Concomitant]

REACTIONS (2)
  - Mental disorder [Unknown]
  - Drug hypersensitivity [Unknown]
